FAERS Safety Report 5798065-8 (Version None)
Quarter: 2008Q3

REPORT INFORMATION
  Report Type: 
  Country: None (occurrence: None)
  Receive Date: 20080702
  Receipt Date: 20070724
  Transmission Date: 20090109
  Serious: No
  Sender: FDA-Public Use
  Company Number: US-ASTRAZENECA-2007UW15804

PATIENT
  Age: 39 Year
  Sex: Female

DRUGS (2)
  1. ZOLADEX [Suspect]
     Indication: HAEMORRHAGE
     Route: 048
     Dates: start: 20070417
  2. TOPROL-XL [Concomitant]
     Indication: HYPERTENSION
     Route: 048

REACTIONS (4)
  - BLOOD PRESSURE INCREASED [None]
  - HOT FLUSH [None]
  - MIGRAINE [None]
  - MOOD SWINGS [None]
